FAERS Safety Report 8776372 (Version 3)
Quarter: 2012Q4

REPORT INFORMATION
  Report Type: 
  Country: US (occurrence: US)
  Receive Date: 20120910
  Receipt Date: 20120926
  Transmission Date: 20130627
  Serious: Yes (Disabling, Other)
  Sender: FDA-Public Use
  Company Number: PHEH2012US017479

PATIENT
  Age: 74 Year
  Sex: Female
  Weight: 64.41 kg

DRUGS (9)
  1. RECLAST [Suspect]
     Indication: OSTEOPENIA
     Dosage: UNK UKN, UNK
     Route: 042
     Dates: start: 20120817
  2. PAXIL [Concomitant]
  3. LOVASTATIN [Concomitant]
  4. LISINOPRIL [Concomitant]
  5. PLAQUENIL [Concomitant]
  6. METOPROLOL [Concomitant]
  7. LEVOTHYROXINE [Concomitant]
  8. PERCOCET [Concomitant]
  9. XANAX [Concomitant]

REACTIONS (3)
  - Polyarthritis [Recovering/Resolving]
  - Rheumatoid arthritis [Recovering/Resolving]
  - Osteoarthritis [Recovering/Resolving]
